FAERS Safety Report 10215771 (Version 2)
Quarter: 2014Q2

REPORT INFORMATION
  Report Type: Other
  Country: GB (occurrence: GB)
  Receive Date: 20140604
  Receipt Date: 20140604
  Transmission Date: 20141212
  Serious: Yes (Other)
  Sender: FDA-Public Use
  Company Number: GB-LUPIN PHARMACEUTICALS INC.-E2B_00001718

PATIENT
  Age: 54 Year
  Sex: Male
  Weight: 95 kg

DRUGS (2)
  1. ESCITALOPRAM [Suspect]
     Indication: BIPOLAR II DISORDER
     Dosage: 10-20MG DAILY
     Route: 065
  2. GLICLAZIDE [Interacting]
     Indication: DIABETES MELLITUS
     Route: 048
     Dates: start: 201306

REACTIONS (3)
  - Inhibitory drug interaction [Unknown]
  - Suicidal ideation [Recovered/Resolved]
  - Depressed mood [Recovered/Resolved]
